FAERS Safety Report 12297879 (Version 2)
Quarter: 2016Q2

REPORT INFORMATION
  Report Type: Report from Study
  Country: US (occurrence: US)
  Receive Date: 20160422
  Receipt Date: 20160506
  Transmission Date: 20160815
  Serious: Yes (Hospitalization)
  Sender: FDA-Public Use
  Company Number: US-PFIZER INC-2016216826

PATIENT
  Age: 21 Year
  Sex: Female
  Weight: 63.8 kg

DRUGS (3)
  1. CYCLOPHOSPHAMIDE. [Concomitant]
     Active Substance: CYCLOPHOSPHAMIDE
     Indication: RHABDOMYOSARCOMA
     Dosage: 250 MG/M2/DOSE, CYCLIC
  2. CRIZOTINIB [Suspect]
     Active Substance: CRIZOTINIB
     Indication: RHABDOMYOSARCOMA
     Dosage: 215 MG/M2/DOSE, CYCLIC
     Route: 048
     Dates: start: 20160404
  3. TOPOTECAN [Concomitant]
     Active Substance: TOPOTECAN\TOPOTECAN HYDROCHLORIDE
     Indication: RHABDOMYOSARCOMA
     Dosage: 0.75 MG/M2/DOSE

REACTIONS (2)
  - Dysphagia [Recovered/Resolved]
  - Non-cardiac chest pain [Unknown]

NARRATIVE: CASE EVENT DATE: 20160407
